FAERS Safety Report 13256447 (Version 1)
Quarter: 2017Q1

REPORT INFORMATION
  Report Type: Spontaneous
  Country: US (occurrence: US)
  Receive Date: 20170220
  Receipt Date: 20170220
  Transmission Date: 20170428
  Serious: Yes (Other)
  Sender: FDA-Public Use
  Company Number: None

PATIENT
  Age: 2 Year
  Sex: Female
  Weight: 11.7 kg

DRUGS (2)
  1. POLYMYXIN B. [Suspect]
     Active Substance: POLYMYXIN B
     Indication: CONJUNCTIVITIS
     Dosage: ?          QUANTITY:2 DROP(S);?
     Route: 047
     Dates: start: 20170209, end: 20170212
  2. AMOXICILLIN. [Suspect]
     Active Substance: AMOXICILLIN
     Indication: PNEUMONIA
     Dosage: QUANTITY:2 TEASPOON(S);?
     Route: 048
     Dates: start: 20170209, end: 20170216

REACTIONS (6)
  - Miliaria [None]
  - Rash [None]
  - Pruritus [None]
  - Skin discolouration [None]
  - Ocular hyperaemia [None]
  - Erythema [None]

NARRATIVE: CASE EVENT DATE: 20170216
